FAERS Safety Report 19179033 (Version 1)
Quarter: 2021Q2

REPORT INFORMATION
  Report Type: Spontaneous
  Country: US (occurrence: US)
  Receive Date: 20210423
  Receipt Date: 20210423
  Transmission Date: 20210717
  Serious: No
  Sender: FDA-Public Use
  Company Number: None

PATIENT
  Age: 39 Year
  Sex: Male
  Weight: 101.65 kg

DRUGS (4)
  1. SULINDAC. [Suspect]
     Active Substance: SULINDAC
     Dates: start: 20210120, end: 20210120
  2. METOPROLOL. [Concomitant]
     Active Substance: METOPROLOL
  3. BACLOFEN. [Concomitant]
     Active Substance: BACLOFEN
  4. GABAPENTIN. [Concomitant]
     Active Substance: GABAPENTIN

REACTIONS (2)
  - Vomiting [None]
  - Abdominal discomfort [None]

NARRATIVE: CASE EVENT DATE: 20210120
